FAERS Safety Report 4766488-1 (Version None)
Quarter: 2005Q3

REPORT INFORMATION
  Report Type: 
  Country: None (occurrence: None)
  Receive Date: 20050909
  Receipt Date: 20050829
  Transmission Date: 20060218
  Serious: Yes (Other)
  Sender: FDA-Public Use
  Company Number: 2005121859

PATIENT
  Age: 66 Year
  Sex: Female

DRUGS (2)
  1. LYRICA [Suspect]
     Indication: BACK PAIN
     Dosage: 75 MG
  2. IBUPROFEN [Concomitant]

REACTIONS (3)
  - ANXIETY [None]
  - NEUROSIS [None]
  - PSYCHOTIC DISORDER [None]
